FAERS Safety Report 24459878 (Version 1)
Quarter: 2024Q4

REPORT INFORMATION
  Report Type: Spontaneous
  Country: CH (occurrence: CH)
  Receive Date: 20241018
  Receipt Date: 20241018
  Transmission Date: 20250115
  Serious: No
  Sender: ROCHE
  Company Number: CH-ROCHE-3568624

PATIENT

DRUGS (4)
  1. RITUXIMAB [Suspect]
     Active Substance: RITUXIMAB
     Indication: Product used for unknown indication
     Route: 064
  2. CAPLACIZUMAB [Concomitant]
     Active Substance: CAPLACIZUMAB
     Route: 064
  3. BETAMETHASONE [Concomitant]
     Active Substance: BETAMETHASONE
     Route: 064
  4. HAEMATE P [Concomitant]
     Active Substance: ANTIHEMOPHILIC FACTOR HUMAN
     Route: 064

REACTIONS (3)
  - Foetal exposure during pregnancy [Unknown]
  - Growth retardation [Unknown]
  - Premature baby [Unknown]
